FAERS Safety Report 25720447 (Version 1)
Quarter: 2025Q3

REPORT INFORMATION
  Report Type: Spontaneous
  Country: US (occurrence: US)
  Receive Date: 20250825
  Receipt Date: 20250825
  Transmission Date: 20251021
  Serious: Yes (Life-Threatening, Hospitalization)
  Sender: STRIDES
  Company Number: None

PATIENT
  Age: 3 Year
  Sex: Female

DRUGS (11)
  1. LEVETIRACETAM [Suspect]
     Active Substance: LEVETIRACETAM
     Indication: Seizure
     Route: 065
  2. LACOSAMIDE [Suspect]
     Active Substance: LACOSAMIDE
     Indication: Seizure
     Route: 065
  3. CLOBAZAM [Concomitant]
     Active Substance: CLOBAZAM
     Indication: Seizure
     Route: 065
  4. VALPROIC ACID [Concomitant]
     Active Substance: VALPROIC ACID
     Indication: Seizure
     Route: 065
  5. LORAZEPAM [Concomitant]
     Active Substance: LORAZEPAM
     Indication: Status epilepticus
  6. FOSPHENYTOIN [Concomitant]
     Active Substance: FOSPHENYTOIN
     Indication: Status epilepticus
  7. PERAMPANEL [Concomitant]
     Active Substance: PERAMPANEL
     Indication: Petit mal epilepsy
     Route: 065
  8. PERAMPANEL [Concomitant]
     Active Substance: PERAMPANEL
  9. PERAMPANEL [Concomitant]
     Active Substance: PERAMPANEL
     Route: 065
  10. PERAMPANEL [Concomitant]
     Active Substance: PERAMPANEL
     Route: 065
  11. MIDAZOLAM [Concomitant]
     Active Substance: MIDAZOLAM
     Indication: Status epilepticus

REACTIONS (3)
  - Drug ineffective [Unknown]
  - Behaviour disorder [Unknown]
  - Agitation [Unknown]
